FAERS Safety Report 9679934 (Version 1)
Quarter: 2013Q4

REPORT INFORMATION
  Report Type: Spontaneous
  Country: US (occurrence: US)
  Receive Date: 20131110
  Receipt Date: 20131110
  Transmission Date: 20140711
  Serious: Yes (Other)
  Sender: FDA-Public Use
  Company Number: US-ENDO PHARMACEUTICALS INC.-APIR20130015

PATIENT
  Sex: Male

DRUGS (2)
  1. ALPRAZOLAM IR TABLETS [Suspect]
     Indication: DRUG DIVERSION
     Dosage: NA
     Route: 065
  2. OXYCODONE HCL [Suspect]
     Indication: DRUG DIVERSION
     Dosage: NA
     Route: 065

REACTIONS (1)
  - Drug diversion [Unknown]
